FAERS Safety Report 5140316-7 (Version None)
Quarter: 2006Q4

REPORT INFORMATION
  Report Type: 
  Country: None (occurrence: None)
  Receive Date: 20061031
  Receipt Date: 20060817
  Transmission Date: 20070319
  Serious: Yes (Life-Threatening)
  Sender: FDA-Public Use
  Company Number: US-MERCK-0608USA04417

PATIENT
  Age: 70 Year
  Sex: Female
  Weight: 61 kg

DRUGS (3)
  1. FOSAMAX [Suspect]
     Indication: OSTEOPOROSIS PROPHYLAXIS
     Route: 048
     Dates: start: 20060501
  2. TENORMIN [Concomitant]
     Indication: TREMOR
     Route: 048
     Dates: start: 19960101
  3. MULTI-VITAMINS [Concomitant]
     Route: 048

REACTIONS (2)
  - FATIGUE [None]
  - GASTRITIS [None]
